FAERS Safety Report 9801028 (Version 12)
Quarter: 2020Q1

REPORT INFORMATION
  Report Type: Report from Study
  Country: US (occurrence: US)
  Receive Date: 20140107
  Receipt Date: 20200213
  Transmission Date: 20200409
  Serious: Yes (Hospitalization, Other)
  Sender: FDA-Public Use
  Company Number: US-SA-2013SA126260

PATIENT
  Age: 55 Year
  Sex: Female

DRUGS (4)
  1. ZOLOFT [Concomitant]
     Active Substance: SERTRALINE HYDROCHLORIDE
     Indication: BIPOLAR DISORDER
     Dosage: UNK
  2. LISINOPRIL. [Concomitant]
     Active Substance: LISINOPRIL
     Indication: BLOOD PRESSURE ABNORMAL
     Dosage: UNK
  3. TERIFLUNOMIDE. [Suspect]
     Active Substance: TERIFLUNOMIDE
     Indication: MULTIPLE SCLEROSIS
     Dosage: 14 MG,QD
     Route: 065
     Dates: start: 20130205
  4. TERIFLUNOMIDE. [Suspect]
     Active Substance: TERIFLUNOMIDE
     Dosage: 14 MG,QD
     Route: 048
     Dates: start: 20131127

REACTIONS (40)
  - Blood sodium decreased [Unknown]
  - Spinal operation [Recovering/Resolving]
  - Back pain [Unknown]
  - Balance disorder [Unknown]
  - Tremor [Unknown]
  - Weight increased [Unknown]
  - Meniscus injury [Recovering/Resolving]
  - Foot fracture [Recovering/Resolving]
  - Tooth abscess [Not Recovered/Not Resolved]
  - Urinary tract infection [Unknown]
  - Malaise [Unknown]
  - Vomiting [Recovered/Resolved]
  - Hypertension [Recovered/Resolved]
  - Sinusitis [Unknown]
  - Pain in extremity [Recovering/Resolving]
  - Muscle spasms [Unknown]
  - Sleep disorder [Unknown]
  - Hypersensitivity [Unknown]
  - Nausea [Unknown]
  - Condition aggravated [Recovering/Resolving]
  - Arthritis [Recovering/Resolving]
  - Intervertebral disc protrusion [Unknown]
  - Depression [Unknown]
  - Arthropathy [Recovering/Resolving]
  - Ligament sprain [Recovering/Resolving]
  - Neuropathy peripheral [Unknown]
  - Constipation [Unknown]
  - Pain [Unknown]
  - Headache [Unknown]
  - Synovial cyst [Recovering/Resolving]
  - Impaired healing [Recovering/Resolving]
  - Fall [Unknown]
  - Mental impairment [Unknown]
  - Nasopharyngitis [Unknown]
  - Product dose omission [Unknown]
  - Visual impairment [Unknown]
  - Cough [Unknown]
  - Weight decreased [Unknown]
  - Alopecia [Unknown]
  - Diarrhoea [Unknown]

NARRATIVE: CASE EVENT DATE: 20131130
